FAERS Safety Report 9766065 (Version 1)
Quarter: 2013Q4

REPORT INFORMATION
  Report Type: Spontaneous
  Country: US (occurrence: US)
  Receive Date: 20131217
  Receipt Date: 20131217
  Transmission Date: 20140711
  Serious: No
  Sender: FDA-Public Use
  Company Number: US-GLAXOSMITHKLINE-A1017386A

PATIENT
  Sex: Female

DRUGS (2)
  1. VOTRIENT [Suspect]
     Indication: MALIGNANT MELANOMA
     Dosage: 4TAB PER DAY
     Route: 065
  2. TAXOL [Concomitant]

REACTIONS (1)
  - Off label use [Unknown]
